FAERS Safety Report 8133408-1 (Version None)
Quarter: 2012Q1

REPORT INFORMATION
  Report Type: 
  Country: None (occurrence: None)
  Receive Date: 20120213
  Receipt Date: 20120209
  Transmission Date: 20120608
  Serious: Yes (Death, Hospitalization)
  Sender: FDA-Public Use
  Company Number: PHHO2011IN17935

PATIENT
  Sex: Male

DRUGS (13)
  1. AZATHIOPRINE [Concomitant]
     Dosage: UNK
     Dates: start: 20111101
  2. RACECADOTRIL [Concomitant]
     Dosage: UNK
     Dates: start: 20111101
  3. ARKAMIN [Concomitant]
     Dosage: UNK
     Dates: start: 20070627, end: 20111010
  4. PANTOPRAZOLE [Concomitant]
     Dosage: UNK
     Dates: start: 20111025
  5. MYCOPHENOLATE MOFETIL [Suspect]
     Indication: RENAL TRANSPLANT
     Dosage: UNK
     Route: 048
     Dates: end: 20111024
  6. NEORAL [Suspect]
     Indication: RENAL TRANSPLANT
     Dosage: 75 MG, UNK
     Route: 048
     Dates: start: 20070605, end: 20111107
  7. DILZEM [Concomitant]
     Dosage: UNK
     Dates: start: 20070617
  8. DEFLAZACORT [Concomitant]
     Dosage: UNK
     Dates: start: 20071217
  9. FOLVITE [Concomitant]
     Dosage: UNK
     Dates: start: 20070617
  10. PANTOCID (PANTOPRAZOLE SODIUM) [Concomitant]
     Dosage: UNK
     Dates: start: 20070617
  11. ATENOLOL [Concomitant]
     Dosage: UNK
     Dates: start: 20070617, end: 20111010
  12. SODIUM BICARBONATE [Concomitant]
     Dosage: UNK
     Dates: start: 20111109
  13. CALCIUM GLUCONATE [Concomitant]
     Dosage: UNK
     Dates: start: 20111107

REACTIONS (6)
  - CYTOMEGALOVIRUS INFECTION [None]
  - SEPSIS [None]
  - PNEUMONIA [None]
  - SEPTIC SHOCK [None]
  - CARDIO-RESPIRATORY ARREST [None]
  - DIARRHOEA [None]
